FAERS Safety Report 17314969 (Version 1)
Quarter: 2020Q1

REPORT INFORMATION
  Report Type: Spontaneous
  Country: US (occurrence: US)
  Receive Date: 20200124
  Receipt Date: 20200124
  Transmission Date: 20200409
  Serious: No
  Sender: FDA-Public Use
  Company Number: US-PCCINC-T201504302

PATIENT

DRUGS (7)
  1. MIRALAX [Concomitant]
     Active Substance: POLYETHYLENE GLYCOL 3350
     Dosage: 17 GRAM, QD
     Route: 065
  2. GABLOFEN [Suspect]
     Active Substance: BACLOFEN
     Indication: MUSCLE SPASTICITY
     Dosage: 661 MCG/DAY
     Route: 037
  3. LAMICTAL [Concomitant]
     Active Substance: LAMOTRIGINE
     Dosage: 100, TID
     Route: 065
  4. MVI                                /01825701/ [Concomitant]
     Active Substance: VITAMINS
     Dosage: UNK
     Route: 065
  5. PROBIOTIC                          /06395501/ [Concomitant]
     Active Substance: BIFIDOBACTERIUM ANIMALIS LACTIS
     Dosage: UNK
     Route: 065
  6. GABLOFEN [Suspect]
     Active Substance: BACLOFEN
     Dosage: 657 MICROGRAM, QD
     Route: 037
  7. LIORESAL [Concomitant]
     Active Substance: BACLOFEN
     Dosage: 250 MICROGRAM, QD
     Route: 037

REACTIONS (3)
  - Device issue [Unknown]
  - Withdrawal syndrome [Unknown]
  - Muscle spasms [Unknown]

NARRATIVE: CASE EVENT DATE: 20150113
